FAERS Safety Report 7131895-9 (Version None)
Quarter: 2010Q4

REPORT INFORMATION
  Report Type: 
  Country: None (occurrence: None)
  Receive Date: 20101202
  Receipt Date: 20101126
  Transmission Date: 20110411
  Serious: Yes (Death, Other)
  Sender: FDA-Public Use
  Company Number: FR-CELGENEUS-056-21880-10091565

PATIENT
  Sex: Male
  Weight: 80 kg

DRUGS (2)
  1. REVLIMID [Suspect]
     Route: 048
     Dates: start: 20071008, end: 20100301
  2. DEXAMETHASONE [Concomitant]
     Route: 065
     Dates: start: 20071008, end: 20100301

REACTIONS (1)
  - ACUTE MYELOID LEUKAEMIA [None]
